FAERS Safety Report 16796586 (Version 1)
Quarter: 2019Q3

REPORT INFORMATION
  Report Type: Spontaneous
  Country: IQ (occurrence: IQ)
  Receive Date: 20190911
  Receipt Date: 20190911
  Transmission Date: 20191005
  Serious: Yes (Other)
  Sender: FDA-Public Use
  Company Number: IQ-BAUSCH-BL-2019-025252

PATIENT
  Age: 21 Year
  Sex: Male

DRUGS (4)
  1. AZITHROMYCIN ANHYDROUS. [Concomitant]
     Active Substance: AZITHROMYCIN ANHYDROUS
     Indication: CONJUNCTIVITIS CHLAMYDIAL
  2. DOXYCYLINE [Suspect]
     Active Substance: DOXYCYCLINE
     Indication: CONJUNCTIVITIS CHLAMYDIAL
  3. AZITHROMYCIN ANHYDROUS. [Concomitant]
     Active Substance: AZITHROMYCIN ANHYDROUS
     Indication: URETHRITIS CHLAMYDIAL
  4. DOXYCYLINE [Suspect]
     Active Substance: DOXYCYCLINE
     Indication: URETHRITIS CHLAMYDIAL
     Route: 065

REACTIONS (2)
  - Parotitis [Recovered/Resolved]
  - Lymphadenopathy [Recovered/Resolved]
